FAERS Safety Report 6935156-X (Version None)
Quarter: 2010Q3

REPORT INFORMATION
  Report Type: 
  Country: None (occurrence: None)
  Receive Date: 20100822
  Receipt Date: 20100816
  Transmission Date: 20110219
  Serious: Yes (Death, Other)
  Sender: FDA-Public Use
  Company Number: PHFR2010GB00833

PATIENT
  Age: 74 Year
  Sex: Male

DRUGS (1)
  1. NEORAL [Suspect]
     Indication: HEART TRANSPLANT

REACTIONS (3)
  - LOWER RESPIRATORY TRACT INFECTION [None]
  - MYOCARDIAL INFARCTION [None]
  - ORAL ADMINISTRATION COMPLICATION [None]
